FAERS Safety Report 5659290-X (Version None)
Quarter: 2008Q1

REPORT INFORMATION
  Report Type: 
  Country: None (occurrence: None)
  Receive Date: 20080311
  Receipt Date: 20070622
  Transmission Date: 20080703
  Serious: No
  Sender: FDA-Public Use
  Company Number: US-BAYER-200712002BCC

PATIENT
  Sex: Female

DRUGS (1)
  1. ALEVE [Suspect]
     Indication: TENDONITIS
     Route: 048
     Dates: start: 20070622

REACTIONS (6)
  - EYE SWELLING [None]
  - HYPERSENSITIVITY [None]
  - MASS [None]
  - PARAESTHESIA ORAL [None]
  - PRURITUS [None]
  - SWELLING FACE [None]
